FAERS Safety Report 18637368 (Version 1)
Quarter: 2020Q4

REPORT INFORMATION
  Report Type: Spontaneous
  Country: US (occurrence: US)
  Receive Date: 20201219
  Receipt Date: 20201219
  Transmission Date: 20210114
  Serious: Yes (Hospitalization, Other)
  Sender: FDA-Public Use
  Company Number: US-AUROBINDO-AUR-APL-2020-061341

PATIENT
  Age: 20 Month
  Sex: Female
  Weight: 12 kg

DRUGS (4)
  1. IBUPROFEN. [Suspect]
     Active Substance: IBUPROFEN
     Indication: PRODUCT USED FOR UNKNOWN INDICATION
     Dosage: UNK
     Route: 065
  2. VANCOMYCIN INJECTION [Suspect]
     Active Substance: VANCOMYCIN
     Dosage: 15 MILLIGRAM/KILOGRAM, FOUR TIMES/DAY
     Route: 042
  3. VANCOMYCIN INJECTION [Suspect]
     Active Substance: VANCOMYCIN
     Indication: WOUND INFECTION STAPHYLOCOCCAL
     Dosage: 20 MILLIGRAM/KILOGRAM (INFUSED OVER 2 H EVERY 6 H)
     Route: 042
  4. CLINDAMYCIN. [Concomitant]
     Active Substance: CLINDAMYCIN
     Indication: WOUND INFECTION STAPHYLOCOCCAL
     Dosage: 10 MILLIGRAM/KILOGRAM, FOUR TIMES/DAY
     Route: 042

REACTIONS (2)
  - Acute kidney injury [Recovering/Resolving]
  - Nephropathy toxic [Recovering/Resolving]
